FAERS Safety Report 22233772 (Version 2)
Quarter: 2023Q2

REPORT INFORMATION
  Report Type: Spontaneous
  Country: JP (occurrence: JP)
  Receive Date: 20230420
  Receipt Date: 20230509
  Transmission Date: 20230721
  Serious: Yes (Hospitalization)
  Sender: FDA-Public Use
  Company Number: JP-ABBVIE-4717984

PATIENT
  Sex: Male
  Weight: 100 kg

DRUGS (2)
  1. RINVOQ [Suspect]
     Active Substance: UPADACITINIB
     Indication: Colitis ulcerative
     Dosage: 15 MILLIGRAM
     Route: 048
  2. RINVOQ [Suspect]
     Active Substance: UPADACITINIB
     Indication: Colitis ulcerative
     Dosage: STRENGTH: 30 MG
     Route: 048

REACTIONS (4)
  - C-reactive protein increased [Recovered/Resolved]
  - Liver disorder [Recovered/Resolved]
  - Pneumonia [Recovered/Resolved]
  - Colitis ulcerative [Recovered/Resolved]
